FAERS Safety Report 8359142-0 (Version None)
Quarter: 2012Q2

REPORT INFORMATION
  Report Type: 
  Country: None (occurrence: None)
  Receive Date: 20120511
  Receipt Date: 20120427
  Transmission Date: 20120825
  Serious: Yes (Other)
  Sender: FDA-Public Use
  Company Number: AXC-2012-000224

PATIENT
  Sex: Male

DRUGS (13)
  1. BLOPRESS (CANDESARTAN CILEXETIL) [Concomitant]
  2. URSODEOXYCHOLIC CID (URSODEOXYCHOLIC ACID) TABLET, 100MG [Suspect]
     Indication: PRODUCT USED FOR UNKNOWN INDICATION
     Dosage: 300 MG, QD, ORAL
     Route: 048
  3. BIOLACTIS (LACTOBACILLUS CASEI) [Concomitant]
  4. AMINOLEBAN EN (ALANINE, AMINOACETIC ACID, ARGINNIE HYDROCHLORIDE, ISOL [Concomitant]
  5. PROGRAF [Concomitant]
  6. CALTAN (CALCIUM CARBONATE) [Concomitant]
  7. LANSOPRAZOLE [Concomitant]
  8. LEVOTHYROXINE SODIUM [Concomitant]
  9. NEOMIN /00038002/ (NEOMYCIN SULFATE) [Concomitant]
  10. CATALIN /00528801/ (PIRENOXINE) [Concomitant]
  11. ALEVIATIN /00017401/ (PHENYTOIN) [Concomitant]
  12. CELTECT (OXATOMIDE) [Concomitant]
  13. ALLEGRA /01314202/ (FEXOFENADINE HYDROCHLORIDE) [Concomitant]

REACTIONS (7)
  - EPILEPSY [None]
  - RENAL FAILURE CHRONIC [None]
  - RENAL IMPAIRMENT [None]
  - ELECTROLYTE IMBALANCE [None]
  - MUSCLE RIGIDITY [None]
  - ASTHENIA [None]
  - DYSPHAGIA [None]
